FAERS Safety Report 6029607-5 (Version None)
Quarter: 2009Q1

REPORT INFORMATION
  Report Type: 
  Country: None (occurrence: None)
  Receive Date: 20090107
  Receipt Date: 20080716
  Transmission Date: 20090719
  Serious: No
  Sender: FDA-Public Use
  Company Number: US-ABBOTT-08P-163-0459114-00

PATIENT
  Sex: Female

DRUGS (28)
  1. VICODIN ES [Suspect]
     Indication: BACK PAIN
     Route: 048
     Dates: end: 20040701
  2. VICODIN ES [Suspect]
  3. FENTANYL CITRATE [Suspect]
     Indication: NECK PAIN
     Route: 002
     Dates: end: 20040622
  4. FENTANYL CITRATE [Suspect]
     Route: 002
     Dates: start: 20040623, end: 20040630
  5. FENTANYL CITRATE [Suspect]
     Route: 002
     Dates: start: 20040701, end: 20050608
  6. FENTANYL CITRATE [Suspect]
     Dates: start: 20050711, end: 20050818
  7. FENTANYL CITRATE [Suspect]
     Route: 002
     Dates: start: 20050819, end: 20050829
  8. FENTANYL CITRATE [Suspect]
     Route: 002
     Dates: start: 20050830, end: 20051006
  9. FENTANYL CITRATE [Suspect]
     Dates: start: 20051007, end: 20060321
  10. VICODIN [Suspect]
     Indication: NECK PAIN
     Dates: end: 20050301
  11. VICODIN [Suspect]
     Dosage: 1 TAB/CAP
     Route: 048
     Dates: start: 20060120
  12. NORGESIC [Suspect]
     Indication: FIBROMYALGIA
     Route: 062
     Dates: end: 20041222
  13. NORGESIC [Suspect]
     Route: 062
     Dates: start: 20041223, end: 20050214
  14. NORGESIC [Suspect]
     Route: 062
     Dates: start: 20050215, end: 20050314
  15. NORGESIC [Suspect]
     Route: 062
     Dates: start: 20050608, end: 20050727
  16. NORGESIC [Suspect]
     Route: 062
     Dates: start: 20050728, end: 20050810
  17. NORGESIC [Suspect]
     Route: 062
     Dates: start: 20050811, end: 20050829
  18. NORGESIC [Suspect]
     Route: 062
     Dates: start: 20050830, end: 20060101
  19. NORGESIC [Suspect]
     Route: 062
     Dates: start: 20060101, end: 20060201
  20. OXYCODONE HYDROCHLORIDE [Suspect]
     Indication: BACK PAIN
     Route: 048
     Dates: start: 20041208, end: 20060501
  21. METHADONE HCL [Suspect]
     Indication: BACK PAIN
     Route: 048
     Dates: start: 20050228
  22. OXYCODONE HCL [Suspect]
     Indication: BACK PAIN
     Route: 048
     Dates: start: 20050608, end: 20050801
  23. OXYCODONE HCL [Suspect]
     Route: 048
     Dates: start: 20060427
  24. TYLOX [Suspect]
     Indication: NECK PAIN
     Dosage: 5MG OXYCODONE/325MG ACETOMINOPHEN
     Dates: start: 20040823, end: 20041001
  25. TYLOX [Suspect]
     Dates: start: 20060414, end: 20060601
  26. OXYCET [Suspect]
     Indication: NECK PAIN
     Dates: start: 20060509
  27. ALPRAZOLAM [Concomitant]
     Indication: DRUG USE FOR UNKNOWN INDICATION
  28. VALIUM [Concomitant]
     Indication: DRUG USE FOR UNKNOWN INDICATION

REACTIONS (11)
  - BACK PAIN [None]
  - CAT SCRATCH DISEASE [None]
  - DRUG DEPENDENCE [None]
  - DRUG SCREEN POSITIVE [None]
  - FIBROMYALGIA [None]
  - LYMPHADENOPATHY [None]
  - MULTIPLE INJURIES [None]
  - NECK PAIN [None]
  - ROAD TRAFFIC ACCIDENT [None]
  - SPINAL DISORDER [None]
  - SPLENOMEGALY [None]
